FAERS Safety Report 11012121 (Version 1)
Quarter: 2015Q2

REPORT INFORMATION
  Report Type: Spontaneous
  Country: US (occurrence: US)
  Receive Date: 20150410
  Receipt Date: 20150410
  Transmission Date: 20150821
  Serious: No
  Sender: FDA-Public Use
  Company Number: US-009507513-1504USA001429

PATIENT
  Sex: Female

DRUGS (1)
  1. JANUVIA [Suspect]
     Active Substance: SITAGLIPTIN PHOSPHATE
     Indication: FIBROMYALGIA
     Dosage: 100 MG, Q4D
     Route: 048
     Dates: start: 2000

REACTIONS (4)
  - Product quality issue [Unknown]
  - Pain [Unknown]
  - Drug dose omission [Unknown]
  - Rotator cuff syndrome [Unknown]
